FAERS Safety Report 7929723-4 (Version None)
Quarter: 2011Q4

REPORT INFORMATION
  Report Type: 
  Country: None (occurrence: None)
  Receive Date: 20111116
  Receipt Date: 20111103
  Transmission Date: 20120403
  Serious: Yes (Death)
  Sender: FDA-Public Use
  Company Number: 2011NUEUSA00050

PATIENT
  Age: 87 Year
  Sex: Female
  Weight: 63 kg

DRUGS (31)
  1. COUMADIN /00014802/ (WARFARIN SODIUM) TABLET [Concomitant]
  2. FIBER-LAX (POLYCARBOPHIL CALCIUM) CAPSULE [Concomitant]
  3. DULCOLAX /0064401/ (BISACODYL) SUPPOSITORY [Concomitant]
  4. RASAGILINE MESYLATE [Suspect]
     Indication: PARKINSON'S DISEASE
     Dosage: 1 MG, QD, ORAL
     Route: 048
     Dates: start: 20111014, end: 20111020
  5. RASAGILINE MESYLATE [Suspect]
     Indication: PARKINSON'S DISEASE
     Dosage: 1 MG, QD, ORAL
     Route: 048
     Dates: start: 20111007, end: 20111013
  6. RASAGILINE MESYLATE [Suspect]
     Indication: PARKINSON'S DISEASE
     Dosage: 1 MG, QD, ORAL
     Route: 048
     Dates: start: 20090320, end: 20111013
  7. TRAZODONE HCL [Suspect]
     Indication: ANXIETY
     Dosage: 25 MG, PM, ORAL
     Route: 048
     Dates: start: 20110225, end: 20111013
  8. TRAZODONE HCL [Suspect]
     Indication: DEPRESSION
     Dosage: 25 MG, PM, ORAL
     Route: 048
     Dates: start: 20110225, end: 20111013
  9. TRAZODONE HCL [Suspect]
     Indication: ANXIETY
     Dosage: 25 MG, PM, ORAL
     Route: 048
     Dates: start: 20090326, end: 20111018
  10. TRAZODONE HCL [Suspect]
     Indication: DEPRESSION
     Dosage: 25 MG, PM, ORAL
     Route: 048
     Dates: start: 20090326, end: 20111018
  11. TRAZODONE HCL [Suspect]
     Indication: ANXIETY
     Dosage: 25 MG, PM, ORAL
     Route: 048
     Dates: start: 20110302, end: 20111013
  12. TRAZODONE HCL [Suspect]
     Indication: DEPRESSION
     Dosage: 25 MG, PM, ORAL
     Route: 048
     Dates: start: 20110302, end: 20111013
  13. TRAZODONE HCL [Suspect]
     Indication: ANXIETY
     Dosage: 25 MG, PM, ORAL
     Route: 048
     Dates: start: 20111021, end: 20111027
  14. TRAZODONE HCL [Suspect]
     Indication: DEPRESSION
     Dosage: 25 MG, PM, ORAL
     Route: 048
     Dates: start: 20111021, end: 20111027
  15. TRAZODONE HCL [Suspect]
     Indication: ANXIETY
     Dosage: 25 MG, PM, ORAL
     Route: 048
     Dates: start: 20111014, end: 20111020
  16. TRAZODONE HCL [Suspect]
     Indication: DEPRESSION
     Dosage: 25 MG, PM, ORAL
     Route: 048
     Dates: start: 20111014, end: 20111020
  17. MULTIVITAMIN /00831701/ (VITAMINS NOS) TABLET [Concomitant]
  18. NUEDEXTA [Suspect]
     Indication: CRYING
     Dosage: 1 CAP, QD
     Dates: start: 20111026, end: 20111028
  19. NUEDEXTA [Suspect]
     Indication: DEPRESSION
     Dosage: 1 CAP, QD
     Dates: start: 20111026, end: 20111028
  20. RISPERDAL [Concomitant]
  21. TYLENOL /00020001/ (PARACETAMOL) TABLET [Concomitant]
  22. WARFARIN SODIUM [Concomitant]
  23. SINEMET [Concomitant]
  24. MILK OF MAGNESIA TAB [Concomitant]
  25. REQUIP [Concomitant]
  26. CYMBALTA [Suspect]
     Indication: DEPRESSION
     Dosage: 60; 30 MG, QD, ORAL
     Route: 048
     Dates: start: 20111019, end: 20111025
  27. CYMBALTA [Suspect]
     Indication: DEPRESSION
     Dosage: 60; 30 MG, QD, ORAL
     Route: 048
     Dates: start: 20111014, end: 20111017
  28. CYMBALTA [Suspect]
     Indication: DEPRESSION
     Dosage: 60; 30 MG, QD, ORAL
     Route: 048
     Dates: start: 20111028, end: 20111028
  29. CYMBALTA [Suspect]
     Indication: DEPRESSION
     Dosage: 60; 30 MG, QD, ORAL
     Route: 048
     Dates: start: 20110915, end: 20111013
  30. SENNA S (DOCUSATE SODIUM, SENNOSIDE A+B) TABLET [Concomitant]
  31. NITRODISC (GLYCERYL TRINITRATE) PATCH [Concomitant]

REACTIONS (17)
  - DYSPHAGIA [None]
  - BLOOD SODIUM INCREASED [None]
  - DRUG INTERACTION [None]
  - COMMUNICATION DISORDER [None]
  - LIVEDO RETICULARIS [None]
  - DYSSTASIA [None]
  - HYPOPNOEA [None]
  - COMA [None]
  - LETHARGY [None]
  - GENERAL PHYSICAL HEALTH DETERIORATION [None]
  - BLOOD CHLORIDE INCREASED [None]
  - OXYGEN SATURATION DECREASED [None]
  - PALLOR [None]
  - PYREXIA [None]
  - URINARY INCONTINENCE [None]
  - SEROTONIN SYNDROME [None]
  - BLOOD ELECTROLYTES ABNORMAL [None]
